FAERS Safety Report 10263312 (Version 2)
Quarter: 2014Q3

REPORT INFORMATION
  Report Type: Spontaneous
  Country: KR (occurrence: KR)
  Receive Date: 20140626
  Receipt Date: 20140701
  Transmission Date: 20150326
  Serious: Yes (Death)
  Sender: FDA-Public Use
  Company Number: KR-BAYER-2014-096217

PATIENT
  Age: 69 Year
  Sex: Female

DRUGS (2)
  1. NEXAVAR [Suspect]
     Active Substance: SORAFENIB
     Dosage: 200 MG, BID
     Dates: start: 20121225
  2. NEXAVAR [Suspect]
     Active Substance: SORAFENIB
     Dosage: 200 MG, BID
     Dates: start: 20111025, end: 20120507

REACTIONS (5)
  - Stoma site infection [None]
  - Palmar-plantar erythrodysaesthesia syndrome [Recovering/Resolving]
  - Dyspnoea exertional [None]
  - Death [Fatal]
  - Drug ineffective [None]

NARRATIVE: CASE EVENT DATE: 20111113
